FAERS Safety Report 7128183-3 (Version None)
Quarter: 2010Q4

REPORT INFORMATION
  Report Type: 
  Country: None (occurrence: None)
  Receive Date: 20101130
  Receipt Date: 20101123
  Transmission Date: 20110411
  Serious: Yes (Disabling)
  Sender: FDA-Public Use
  Company Number: PHFR2010GB04786

PATIENT
  Sex: Male

DRUGS (1)
  1. CLOZARIL [Suspect]
     Indication: SCHIZOPHRENIA, PARANOID TYPE
     Dosage: 12.5MG, UNK
     Route: 048
     Dates: start: 20101004, end: 20101007

REACTIONS (5)
  - DRUG INTOLERANCE [None]
  - HYPERHIDROSIS [None]
  - HYPOTENSION [None]
  - IMMOBILE [None]
  - VOMITING [None]
